FAERS Safety Report 20690508 (Version 4)
Quarter: 2022Q2

REPORT INFORMATION
  Report Type: Spontaneous
  Country: US (occurrence: US)
  Receive Date: 20220408
  Receipt Date: 20220428
  Transmission Date: 20220721
  Serious: Yes (Hospitalization)
  Sender: FDA-Public Use
  Company Number: US-UNITED THERAPEUTICS-UNT-2022-006646

PATIENT
  Age: 58 Year
  Sex: Female
  Weight: 108.84 kg

DRUGS (10)
  1. TYVASO [Suspect]
     Active Substance: TREPROSTINIL
     Indication: Pulmonary arterial hypertension
     Dosage: UNK
     Dates: start: 20210421
  2. TYVASO [Suspect]
     Active Substance: TREPROSTINIL
     Dosage: 72-108 ?G, QID
  3. TYVASO [Suspect]
     Active Substance: TREPROSTINIL
     Dosage: UNK
     Dates: end: 202204
  4. REMODULIN [Suspect]
     Active Substance: TREPROSTINIL
     Indication: Pulmonary arterial hypertension
     Dosage: UNK
     Route: 058
     Dates: start: 20220408
  5. REMODULIN [Suspect]
     Active Substance: TREPROSTINIL
     Dosage: 0.014 ?G/KG, CONTINUING
     Route: 058
  6. VELETRI [Suspect]
     Active Substance: EPOPROSTENOL
     Indication: Product used for unknown indication
     Dosage: UNK
     Route: 065
  7. VELETRI [Suspect]
     Active Substance: EPOPROSTENOL
     Dosage: 0.013 ?G/KG
     Route: 065
     Dates: start: 20220419
  8. REVATIO [Concomitant]
     Active Substance: SILDENAFIL CITRATE
     Indication: Product used for unknown indication
     Dosage: UNK
     Route: 065
  9. ESBRIET [Concomitant]
     Active Substance: PIRFENIDONE
     Indication: Product used for unknown indication
     Dosage: UNK
     Route: 065
  10. OFEV [Concomitant]
     Active Substance: NINTEDANIB
     Indication: Product used for unknown indication
     Dosage: UNK
     Route: 065

REACTIONS (15)
  - Catheterisation cardiac abnormal [Unknown]
  - Headache [Recovering/Resolving]
  - Condition aggravated [Unknown]
  - Dyspnoea [Unknown]
  - Herpes zoster [Unknown]
  - Cardiac index decreased [Unknown]
  - Subcutaneous drug absorption impaired [Unknown]
  - Pain in jaw [Recovering/Resolving]
  - Catheter site erythema [Unknown]
  - Catheter site pruritus [Unknown]
  - Catheter site rash [Unknown]
  - Decreased appetite [Unknown]
  - Therapy non-responder [Unknown]
  - Product administration error [Unknown]
  - Off label use [Recovered/Resolved]

NARRATIVE: CASE EVENT DATE: 20220317
